FAERS Safety Report 24454288 (Version 2)
Quarter: 2024Q4

REPORT INFORMATION
  Report Type: Report from Study
  Country: CN (occurrence: CN)
  Receive Date: 20241017
  Receipt Date: 20241018
  Transmission Date: 20250115
  Serious: No
  Sender: ROCHE
  Company Number: CN-ROCHE-3466039

PATIENT

DRUGS (2)
  1. RITUXIMAB [Suspect]
     Active Substance: RITUXIMAB
     Indication: Immune thrombocytopenia
     Dosage: FREQUENCY TEXT:ONCE
     Route: 041
  2. ELTROMBOPAG [Suspect]
     Active Substance: ELTROMBOPAG
     Indication: Immune thrombocytopenia
     Dosage: 50 MG/75 MG DAILY
     Route: 065

REACTIONS (4)
  - Hepatic function abnormal [Unknown]
  - Infection [Unknown]
  - Alopecia [Unknown]
  - Deep vein thrombosis [Unknown]
